FAERS Safety Report 12189013 (Version 2)
Quarter: 2016Q2

REPORT INFORMATION
  Report Type: Spontaneous
  Country: DE (occurrence: DE)
  Receive Date: 20160317
  Receipt Date: 20160408
  Transmission Date: 20160815
  Serious: Yes (Hospitalization)
  Sender: FDA-Public Use
  Company Number: DE-SUNOVION-2012SP002897

PATIENT

DRUGS (13)
  1. DICLOFENAC [Concomitant]
     Active Substance: DICLOFENAC
     Indication: LUPUS-LIKE SYNDROME
  2. ZEBINIX [Suspect]
     Active Substance: ESLICARBAZEPINE ACETATE
     Indication: EPILEPSY
     Dosage: 1600 MG, QD
     Route: 048
     Dates: start: 201003, end: 201206
  3. LEFLUNOMIDE. [Concomitant]
     Active Substance: LEFLUNOMIDE
     Indication: LUPUS-LIKE SYNDROME
  4. DICLOFENAC [Concomitant]
     Active Substance: DICLOFENAC
     Indication: RHEUMATIC DISORDER
  5. RITUXIMAB [Concomitant]
     Active Substance: RITUXIMAB
     Indication: LUPUS-LIKE SYNDROME
     Dosage: UNK
     Dates: end: 201206
  6. LAMOTRIGIN [Concomitant]
     Active Substance: LAMOTRIGINE
     Indication: EPILEPSY
     Dates: start: 1998
  7. RAMIPRIL. [Concomitant]
     Active Substance: RAMIPRIL
     Indication: HYPERTENSION
  8. NACL [Concomitant]
     Active Substance: SODIUM CHLORIDE
     Indication: PRODUCT USED FOR UNKNOWN INDICATION
  9. LEVETIRACETAM. [Concomitant]
     Active Substance: LEVETIRACETAM
     Indication: EPILEPSY
     Dates: start: 2005
  10. CALCIUM PLUS VITAMIN D3 [Concomitant]
     Indication: OSTEOPOROSIS
  11. PREDNISOLONE. [Concomitant]
     Active Substance: PREDNISOLONE
     Indication: LUPUS-LIKE SYNDROME
  12. LEFLUNOMIDE. [Concomitant]
     Active Substance: LEFLUNOMIDE
     Indication: RHEUMATIC DISORDER
  13. PREDNISOLONE. [Concomitant]
     Active Substance: PREDNISOLONE
     Indication: RHEUMATIC DISORDER

REACTIONS (12)
  - Pleural effusion [Recovered/Resolved]
  - Nausea [Recovered/Resolved]
  - Rhinitis [Recovered/Resolved]
  - Hyponatraemia [Recovered/Resolved]
  - Weight decreased [Recovered/Resolved]
  - Drug dose titration not performed [Unknown]
  - General physical health deterioration [Recovered/Resolved]
  - Pericardial effusion [Recovered/Resolved]
  - Vital capacity decreased [Recovered/Resolved]
  - Rheumatoid arthritis [Recovered/Resolved]
  - Cough [Recovered/Resolved]
  - Lupus-like syndrome [Recovered/Resolved]

NARRATIVE: CASE EVENT DATE: 2010
